FAERS Safety Report 9828569 (Version 1)
Quarter: 2013Q4

REPORT INFORMATION
  Report Type: Spontaneous
  Country: US (occurrence: None)
  Receive Date: 20131120
  Receipt Date: 20131120
  Transmission Date: 20140711
  Serious: No
  Sender: FDA-Public Use
  Company Number: 1000047950

PATIENT
  Age: 63 Year
  Sex: Female

DRUGS (5)
  1. VIIBRYD [Suspect]
     Indication: DEPRESSION
     Dosage: 10 MG, (10 MG, 1 IN 1 D), ORAL
     Route: 048
     Dates: start: 20130724, end: 20130730
  2. WELLBUTRIN SR (BUPROPION) (BUPROPION) [Concomitant]
  3. KLONOPIN (CLONAZEPAM) (CLONAZEPAM) [Concomitant]
  4. HYDROCHLOROTHIAZIDE) (HYDROCHLOROTHIAZIDE) [Concomitant]
  5. VITAMINS NOS (VITAMINS NOS) [Concomitant]

REACTIONS (1)
  - Diarrhoea [None]
